FAERS Safety Report 7606545-5 (Version None)
Quarter: 2011Q3

REPORT INFORMATION
  Report Type: 
  Country: None (occurrence: None)
  Receive Date: 20110713
  Receipt Date: 20110629
  Transmission Date: 20111222
  Serious: Yes (Hospitalization)
  Sender: FDA-Public Use
  Company Number: PHHY2011FR36488

PATIENT
  Sex: Female
  Weight: 54 kg

DRUGS (2)
  1. OMEPRAZOLE [Concomitant]
     Dosage: 20 MG, UNK
     Dates: start: 20091101
  2. GLEEVEC [Suspect]
     Indication: GASTROINTESTINAL STROMAL TUMOUR
     Dates: start: 20091109, end: 20100816

REACTIONS (6)
  - HAEMATURIA [None]
  - BLOOD COUNT ABNORMAL [None]
  - SYNOVIAL CYST [None]
  - HAEMOLYTIC URAEMIC SYNDROME [None]
  - HEPATIC MASS [None]
  - PERITONEAL CYST [None]
